FAERS Safety Report 4842785-6 (Version None)
Quarter: 2005Q4

REPORT INFORMATION
  Report Type: 
  Country: None (occurrence: None)
  Receive Date: 20051128
  Receipt Date: 20051114
  Transmission Date: 20060501
  Serious: Yes (Hospitalization, Other)
  Sender: FDA-Public Use
  Company Number: 2005070424

PATIENT
  Sex: Female
  Weight: 79.3795 kg

DRUGS (4)
  1. MACUGEN [Suspect]
     Indication: MACULAR DEGENERATION
     Dosage: 1 IN 6 WK, INTRAVENOUS
     Route: 042
     Dates: start: 20050418, end: 20051109
  2. NEURONTIN [Suspect]
     Indication: NEURITIS
     Dosage: 300 MG, ONCE TO THREE TIMES DAILY
     Dates: start: 20050801
  3. VITAMINE (VITAMINS) [Concomitant]
  4. SYNTHROID [Concomitant]

REACTIONS (13)
  - BALANCE DISORDER [None]
  - BURNING SENSATION [None]
  - EYE IRRITATION [None]
  - HEADACHE [None]
  - HYPOAESTHESIA [None]
  - MALAISE [None]
  - NAUSEA [None]
  - NERVOUSNESS [None]
  - PAIN [None]
  - SCAR [None]
  - SCOTOMA [None]
  - SINUS DISORDER [None]
  - TEMPORAL ARTERITIS [None]
